FAERS Safety Report 9467488 (Version 1)
Quarter: 2013Q3

REPORT INFORMATION
  Report Type: Spontaneous
  Country: US (occurrence: None)
  Receive Date: 20130819
  Receipt Date: 20130819
  Transmission Date: 20140515
  Serious: No
  Sender: FDA-Public Use
  Company Number: None

PATIENT
  Age: 59 Year
  Sex: Male
  Weight: 105.6 kg

DRUGS (1)
  1. SUTENT [Suspect]
     Dates: end: 20130812

REACTIONS (1)
  - Blood phosphorus abnormal [None]
